FAERS Safety Report 8002065-7 (Version None)
Quarter: 2011Q4

REPORT INFORMATION
  Report Type: 
  Country: None (occurrence: None)
  Receive Date: 20111222
  Receipt Date: 20111215
  Transmission Date: 20120403
  Serious: Yes (Other)
  Sender: FDA-Public Use
  Company Number: PHHY2011KR109902

PATIENT
  Age: 64 Year
  Sex: Male
  Weight: 71.6 kg

DRUGS (12)
  1. NICERGOLINE [Concomitant]
     Dosage: 10 MG, QD
  2. FENOFIBRATE [Concomitant]
     Dosage: 100 MG, QD
  3. HEPARIN [Concomitant]
     Dosage: 2500 IU, UNK
  4. WARFARIN SODIUM [Suspect]
     Dosage: 2 MG, QD
  5. WARFARIN SODIUM [Suspect]
     Indication: ANTICOAGULANT THERAPY
     Dosage: 4 MG, QD
  6. GINKGO BILOBA LEAF EXTRACT [Concomitant]
     Dosage: 80 MG, QD
  7. WARFARIN SODIUM [Suspect]
     Dosage: 1 MG, QD
  8. WARFARIN SODIUM [Suspect]
     Dosage: 2 MG, QD
  9. ACETAMINOPHEN [Concomitant]
     Dosage: 650 MG, BID
  10. WARFARIN SODIUM [Suspect]
     Dosage: 4.0 MG, QW
  11. METFORMIN HCL [Concomitant]
     Dosage: 500 MG, QD
  12. CELECOXIB [Concomitant]
     Dosage: 200 MG, QD

REACTIONS (3)
  - PROTHROMBIN TIME PROLONGED [None]
  - DRUG INTOLERANCE [None]
  - INTERNATIONAL NORMALISED RATIO INCREASED [None]
